FAERS Safety Report 9159144 (Version 1)
Quarter: 2013Q1

REPORT INFORMATION
  Report Type: Spontaneous
  Country: SG (occurrence: None)
  Receive Date: 20130213
  Receipt Date: 20130213
  Transmission Date: 20140127
  Serious: Yes (Other)
  Sender: FDA-Public Use
  Company Number: 2013P1001889

PATIENT
  Age: 49 Year
  Sex: Female

DRUGS (2)
  1. ACYCLOVIR [Suspect]
     Indication: HERPES SIMPLEX
  2. ESOMEPRAZOLE [Concomitant]

REACTIONS (6)
  - Dysarthria [None]
  - Balance disorder [None]
  - Coordination abnormal [None]
  - Gait disturbance [None]
  - Cerebellar syndrome [None]
  - Toxicity to various agents [None]
